FAERS Safety Report 9678834 (Version 1)
Quarter: 2013Q4

REPORT INFORMATION
  Report Type: Spontaneous
  Country: BR (occurrence: BR)
  Receive Date: 20131108
  Receipt Date: 20131108
  Transmission Date: 20140711
  Serious: Yes (Other)
  Sender: FDA-Public Use
  Company Number: BR-GLAXOSMITHKLINE-B0940611A

PATIENT
  Sex: Female
  Weight: 53 kg

DRUGS (9)
  1. ENDRONAX [Suspect]
     Indication: OSTEOPOROSIS
     Dosage: 1TAB WEEKLY
     Route: 048
     Dates: start: 1983
  2. RITMONORM (PROPAFENONE 300MG) [Suspect]
     Indication: CARDIAC DISORDER
     Dosage: 150MG TWICE PER DAY
     Route: 048
     Dates: start: 2003
  3. SIMVASTATIN [Concomitant]
     Indication: BLOOD CHOLESTEROL INCREASED
     Dosage: 10MG AT NIGHT
     Route: 048
     Dates: start: 2003
  4. BUFFERIN [Concomitant]
     Indication: THROMBOSIS PROPHYLAXIS
     Dosage: 81MG PER DAY
     Route: 048
     Dates: start: 2003
  5. LOSARTAN POTASSIUM [Concomitant]
     Indication: CARDIAC DISORDER
     Route: 048
     Dates: start: 2003
  6. OMEPRAZOLE [Concomitant]
     Indication: ABDOMINAL PAIN UPPER
     Dosage: 40MG PER DAY
     Dates: start: 2003
  7. ALENDRONATE SODIUM [Concomitant]
     Indication: OSTEOPOROSIS
     Dosage: 70MG SEE DOSAGE TEXT
     Route: 048
  8. PANTOPRAZOLE [Concomitant]
     Indication: GASTRIC DISORDER
     Dosage: 40MG PER DAY
     Route: 048
     Dates: start: 2003
  9. FERROUS SULFATE [Concomitant]
     Indication: CARDIAC DISORDER
     Dosage: 1TAB PER DAY
     Route: 048
     Dates: start: 2003

REACTIONS (18)
  - Glaucoma [Not Recovered/Not Resolved]
  - Angina pectoris [Recovering/Resolving]
  - Bladder prolapse [Not Recovered/Not Resolved]
  - Chest pain [Unknown]
  - Urinary incontinence [Recovering/Resolving]
  - Palpitations [Recovering/Resolving]
  - Joint dislocation [Recovering/Resolving]
  - Arthralgia [Not Recovered/Not Resolved]
  - Fall [Recovering/Resolving]
  - Blood cholesterol increased [Recovering/Resolving]
  - Blood glucose increased [Not Recovered/Not Resolved]
  - Nocturia [Recovering/Resolving]
  - Memory impairment [Not Recovered/Not Resolved]
  - Nervousness [Not Recovered/Not Resolved]
  - Abnormal behaviour [Recovering/Resolving]
  - Hearing impaired [Unknown]
  - Disturbance in attention [Unknown]
  - Visual impairment [Unknown]
